FAERS Safety Report 21835787 (Version 1)
Quarter: 2023Q1

REPORT INFORMATION
  Report Type: Report from Study
  Country: CA (occurrence: CA)
  Receive Date: 20230109
  Receipt Date: 20230109
  Transmission Date: 20230418
  Serious: Yes (Other)
  Sender: FDA-Public Use
  Company Number: CA-002147023-NVSC2022CA289577

PATIENT
  Age: 51 Year
  Sex: Male

DRUGS (3)
  1. MONTELUKAST [Suspect]
     Active Substance: MONTELUKAST SODIUM
     Indication: Aplastic anaemia
     Dosage: 10 MG, QD
     Route: 048
     Dates: start: 202210
  2. VENTOLIN [Concomitant]
     Active Substance: ALBUTEROL SULFATE
     Indication: Aplastic anaemia
     Dosage: 1 DOSAGE FORM, PRN
     Dates: start: 1980
  3. OMNARIS [Concomitant]
     Active Substance: CICLESONIDE
     Indication: Aplastic anaemia
     Dosage: UNK UNK, QD
     Route: 045
     Dates: start: 202210

REACTIONS (3)
  - Blood immunoglobulin E increased [Unknown]
  - Asthma [Unknown]
  - Product use in unapproved indication [Unknown]
